FAERS Safety Report 14267994 (Version 1)
Quarter: 2017Q4

REPORT INFORMATION
  Report Type: Spontaneous
  Country: US (occurrence: None)
  Receive Date: 20171211
  Receipt Date: 20171211
  Transmission Date: 20180321
  Serious: Yes (Life-Threatening, Hospitalization)
  Sender: FDA-Public Use
  Company Number: None

PATIENT
  Age: 20 Year
  Sex: Male

DRUGS (1)
  1. BUPRENORPHINE. [Suspect]
     Active Substance: BUPRENORPHINE

REACTIONS (5)
  - Haematemesis [None]
  - Pneumonia aspiration [None]
  - Cardiac arrest [None]
  - Hypoxia [None]
  - Agitation [None]

NARRATIVE: CASE EVENT DATE: 20171028
